FAERS Safety Report 25585422 (Version 1)
Quarter: 2025Q3

REPORT INFORMATION
  Report Type: Report from Study
  Country: US (occurrence: US)
  Receive Date: 20250721
  Receipt Date: 20250721
  Transmission Date: 20251021
  Serious: Yes (Other)
  Sender: SUNOVION
  Company Number: US-SMPA-2025SPA009095

PATIENT

DRUGS (2)
  1. ORGOVYX [Suspect]
     Active Substance: RELUGOLIX
     Indication: Prostate cancer
     Route: 048
  2. ORGOVYX [Suspect]
     Active Substance: RELUGOLIX
     Route: 048
     Dates: start: 20250423

REACTIONS (9)
  - Arrhythmia [Unknown]
  - Blood potassium increased [Unknown]
  - Emotional disorder [Unknown]
  - Vitamin D increased [Unknown]
  - Pollakiuria [Unknown]
  - Micturition urgency [Unknown]
  - Brain fog [Unknown]
  - Fatigue [Unknown]
  - Hot flush [Unknown]
